FAERS Safety Report 6322073-1 (Version None)
Quarter: 2009Q3

REPORT INFORMATION
  Report Type: 
  Country: None (occurrence: None)
  Receive Date: 20090821
  Receipt Date: 20090821
  Transmission Date: 20100115
  Serious: No
  Sender: FDA-Public Use
  Company Number: None

PATIENT
  Age: 65 Year
  Sex: Female
  Weight: 108.8633 kg

DRUGS (4)
  1. LYRICA [Suspect]
     Indication: HYPOAESTHESIA
     Dosage: 1 OR 2 CAPS TWICE A DAY PO
     Route: 048
     Dates: start: 20090701, end: 20090818
  2. LYRICA [Suspect]
     Indication: PARAESTHESIA
     Dosage: 1 OR 2 CAPS TWICE A DAY PO
     Route: 048
     Dates: start: 20090701, end: 20090818
  3. VENLAFAXINE HYDROCHLORIDE [Concomitant]
  4. TOPIRAMATE [Concomitant]

REACTIONS (12)
  - ABDOMINAL PAIN [None]
  - ARTHRALGIA [None]
  - CONTUSION [None]
  - DECREASED APPETITE [None]
  - EAR PAIN [None]
  - HAEMORRHAGE [None]
  - HEADACHE [None]
  - JOINT SWELLING [None]
  - MYALGIA [None]
  - NAUSEA [None]
  - PYREXIA [None]
  - TOOTHACHE [None]
